FAERS Safety Report 13888885 (Version 1)
Quarter: 2017Q3

REPORT INFORMATION
  Report Type: Spontaneous
  Country: TR (occurrence: TR)
  Receive Date: 20170822
  Receipt Date: 20170822
  Transmission Date: 20171127
  Serious: Yes (Hospitalization)
  Sender: FDA-Public Use
  Company Number: TR-ASTELLAS-2017US032992

PATIENT
  Sex: Male

DRUGS (1)
  1. XTANDI [Suspect]
     Active Substance: ENZALUTAMIDE
     Indication: HORMONE-REFRACTORY PROSTATE CANCER
     Dosage: 160 MG, ONCE DAILY (40 MG, (4X1)
     Route: 065
     Dates: start: 2017, end: 2017

REACTIONS (7)
  - Fatigue [Unknown]
  - Vomiting [Unknown]
  - Prostatic specific antigen increased [Unknown]
  - Nausea [Unknown]
  - Gait inability [Unknown]
  - Weight decreased [Unknown]
  - Bone pain [Unknown]

NARRATIVE: CASE EVENT DATE: 2017
